FAERS Safety Report 19011342 (Version 1)
Quarter: 2021Q1

REPORT INFORMATION
  Report Type: Spontaneous
  Country: CN (occurrence: CN)
  Receive Date: 20210316
  Receipt Date: 20210316
  Transmission Date: 20210420
  Serious: Yes (Other)
  Sender: FDA-Public Use
  Company Number: CN-BAXTER-2021BAX004775

PATIENT
  Age: 65 Year
  Sex: Female
  Weight: 57 kg

DRUGS (13)
  1. ENDOXAN [Suspect]
     Active Substance: CYCLOPHOSPHAMIDE
     Dosage: SECOND CHEMOTHERAPY, ENDOXAN + NS 45 ML
     Route: 042
     Dates: start: 20201229, end: 20201229
  2. 0.9% SODIUM CHLORIDE INJECTION [Suspect]
     Active Substance: SODIUM CHLORIDE
     Indication: MEDICATION DILUTION
     Dosage: FIRST CHEMOTHERAPY,  NS + ENDOXAN
     Route: 042
  3. 0.9% SODIUM CHLORIDE INJECTION [Suspect]
     Active Substance: SODIUM CHLORIDE
     Dosage: DOSE RE?INTRODUCED, NS + ENDOXAN
     Route: 042
  4. PHARMORUBICIN [Suspect]
     Active Substance: EPIRUBICIN
     Dosage: DOSE RE?INTRODUCED, PHARMORUBICIN + NS
     Route: 041
  5. JINYOULI [Concomitant]
     Active Substance: ANF-RHO
     Indication: PRODUCT USED FOR UNKNOWN INDICATION
     Route: 058
     Dates: start: 20201230
  6. 0.9% SODIUM CHLORIDE INJECTION [Suspect]
     Active Substance: SODIUM CHLORIDE
     Dosage: SECOND CHEMOTHERAPY, NS + ENDOXAN 850 MG
     Route: 042
     Dates: start: 20201229, end: 20201229
  7. PHARMORUBICIN [Suspect]
     Active Substance: EPIRUBICIN
     Indication: BREAST CANCER FEMALE
     Dosage: FIRST CHEMOTHERAPY, PHARMORUBICIN + NS
     Route: 041
  8. ENDOXAN [Suspect]
     Active Substance: CYCLOPHOSPHAMIDE
     Indication: BREAST CANCER FEMALE
     Dosage: FIRST CHEMOTHERAPY, ENDOXAN + NORMAL SALINE (NS)
     Route: 042
  9. 0.9% SODIUM CHLORIDE INJECTION [Suspect]
     Active Substance: SODIUM CHLORIDE
     Dosage: FIRST CHEMOTHERAPY, NS + PHARMORUBICIN
     Route: 041
  10. 0.9% SODIUM CHLORIDE INJECTION [Suspect]
     Active Substance: SODIUM CHLORIDE
     Dosage: DOSE RE?INTRODUCED, NS + PHARMORUBICIN
     Route: 041
  11. ENDOXAN [Suspect]
     Active Substance: CYCLOPHOSPHAMIDE
     Dosage: DOSE RE?INTRODUCED, ENDOXAN + NS
     Route: 042
  12. 0.9% SODIUM CHLORIDE INJECTION [Suspect]
     Active Substance: SODIUM CHLORIDE
     Dosage: SECOND CHEMOTHERAPY, NS + PHARMORUBICIN 128 MG
     Route: 041
     Dates: start: 20201229, end: 20201229
  13. PHARMORUBICIN [Suspect]
     Active Substance: EPIRUBICIN
     Dosage: SECOND CHEMOTHERAPY, PHARMORUBICIN + NS 100 ML
     Route: 041
     Dates: start: 20201229, end: 20201229

REACTIONS (2)
  - White blood cell count decreased [Recovering/Resolving]
  - Agranulocytosis [Recovering/Resolving]

NARRATIVE: CASE EVENT DATE: 20210105
